FAERS Safety Report 25707038 (Version 1)
Quarter: 2025Q3

REPORT INFORMATION
  Report Type: Spontaneous
  Country: BR (occurrence: BR)
  Receive Date: 20250820
  Receipt Date: 20250820
  Transmission Date: 20251021
  Serious: Yes (Other)
  Sender: TAKEDA
  Company Number: BR-TAKEDA-2025TUS072468

PATIENT
  Age: 1 Year
  Sex: Female

DRUGS (1)
  1. ENDOBULIN [Suspect]
     Active Substance: HUMAN IMMUNOGLOBULIN G
     Indication: Hypogammaglobulinaemia

REACTIONS (3)
  - Anaphylactic reaction [Unknown]
  - Cough [Recovered/Resolved]
  - Decreased activity [Recovered/Resolved]
